FAERS Safety Report 17955093 (Version 1)
Quarter: 2020Q2

REPORT INFORMATION
  Report Type: Report from Study
  Country: DE (occurrence: DE)
  Receive Date: 20200629
  Receipt Date: 20200629
  Transmission Date: 20200714
  Serious: Yes (Hospitalization, Other)
  Sender: FDA-Public Use
  Company Number: DE-TEVA-2020-DE-1792006

PATIENT
  Sex: Female
  Weight: 99 kg

DRUGS (3)
  1. TAGRISSO [Concomitant]
     Active Substance: OSIMERTINIB
     Dosage: THERAPY START DATE AND END DATE: ASKU
  2. ETHINYLESTRADIOL/LEVONORGESTREL [Suspect]
     Active Substance: ETHINYL ESTRADIOL\LEVONORGESTREL
     Indication: PRODUCT USED FOR UNKNOWN INDICATION
     Dosage: UNK
     Route: 065
  3. METFORMIN [Concomitant]
     Active Substance: METFORMIN HYDROCHLORIDE
     Indication: POLYCYSTIC OVARIES
     Dosage: THERAPY END DATE: ASKU
     Dates: start: 201306

REACTIONS (3)
  - Deep vein thrombosis [Unknown]
  - Bronchial carcinoma [Unknown]
  - Maternal exposure during pregnancy [Recovered/Resolved]

NARRATIVE: CASE EVENT DATE: 20180312
